FAERS Safety Report 15579159 (Version 4)
Quarter: 2019Q1

REPORT INFORMATION
  Report Type: Report from Study
  Country: US (occurrence: US)
  Receive Date: 20181102
  Receipt Date: 20190312
  Transmission Date: 20190417
  Serious: Yes (Other)
  Sender: FDA-Public Use
  Company Number: US-SA-2018SA298944

PATIENT
  Age: 62 Year
  Sex: Female

DRUGS (2)
  1. SARILUMAB [Suspect]
     Active Substance: SARILUMAB
     Indication: RHEUMATOID ARTHRITIS
     Dosage: 150 MG, QOW
     Route: 058
     Dates: start: 20181103
  2. NEOMYCIN. [Suspect]
     Active Substance: NEOMYCIN
     Indication: DIABETIC FOOT

REACTIONS (4)
  - Diabetic foot [Unknown]
  - Drug hypersensitivity [Unknown]
  - Product dose omission [Unknown]
  - Rheumatoid arthritis [Not Recovered/Not Resolved]

NARRATIVE: CASE EVENT DATE: 2019
